FAERS Safety Report 10345165 (Version 1)
Quarter: 2014Q3

REPORT INFORMATION
  Report Type: Spontaneous
  Country: CA (occurrence: None)
  Receive Date: 20140725
  Receipt Date: 20140725
  Transmission Date: 20150326
  Serious: Yes (Hospitalization, Other)
  Sender: FDA-Public Use
  Company Number: None

PATIENT
  Age: 60 Year
  Sex: Male
  Weight: 77.4 kg

DRUGS (6)
  1. GALEXOS [Suspect]
     Active Substance: SIMEPREVIR
     Indication: CHRONIC HEPATITIS C
     Dosage: 150 MG PO DAILY.
     Dates: start: 20140507, end: 20140529
  2. CRESTOR [Concomitant]
     Active Substance: ROSUVASTATIN CALCIUM
  3. FUROSEMIDE. [Concomitant]
     Active Substance: FUROSEMIDE
  4. NADAOLOL [Concomitant]
  5. SOVALDI [Suspect]
     Active Substance: SOFOSBUVIR
     Indication: CHRONIC HEPATITIS C
     Dosage: 400 MG PO DAILY.
     Dates: start: 20140307, end: 20140529
  6. AMILORIDE [Concomitant]
     Active Substance: AMILORIDE

REACTIONS (4)
  - Venous pressure jugular increased [None]
  - Cardiac murmur [None]
  - Blood creatinine increased [None]
  - Ascites [None]

NARRATIVE: CASE EVENT DATE: 20140603
